FAERS Safety Report 13041361 (Version 1)
Quarter: 2016Q4

REPORT INFORMATION
  Report Type: Spontaneous
  Country: US (occurrence: US)
  Receive Date: 20161219
  Receipt Date: 20161219
  Transmission Date: 20170207
  Serious: Yes (Other)
  Sender: FDA-Public Use
  Company Number: US-ROCHE-1074740

PATIENT
  Age: 60 Year
  Sex: Male
  Weight: 76.73 kg

DRUGS (2)
  1. ZELBORAF [Suspect]
     Active Substance: VEMURAFENIB
     Indication: PRODUCT USED FOR UNKNOWN INDICATION
     Route: 048
     Dates: start: 20120307, end: 20120522
  2. ZELBORAF [Suspect]
     Active Substance: VEMURAFENIB
     Route: 065

REACTIONS (8)
  - Hepatic steatosis [Unknown]
  - Melanoma recurrent [Unknown]
  - Jaundice [Unknown]
  - Dyspnoea [Unknown]
  - Hepatic function abnormal [Unknown]
  - Feeling abnormal [Unknown]
  - Liver disorder [Unknown]
  - Chest pain [Unknown]

NARRATIVE: CASE EVENT DATE: 20120508
